FAERS Safety Report 18255847 (Version 1)
Quarter: 2020Q3

REPORT INFORMATION
  Report Type: Other
  Country: US (occurrence: US)
  Receive Date: 20200910
  Receipt Date: 20200910
  Transmission Date: 20201103
  Serious: No
  Sender: FDA-Public Use
  Company Number: US-LEADIANT BIOSCIENCES INC-2019STPI000456

PATIENT

DRUGS (11)
  1. VITAMIN C [Concomitant]
     Active Substance: ASCORBIC ACID
  2. VITAMINS NOS [Concomitant]
     Active Substance: VITAMINS
  3. BENADRYL [Concomitant]
     Active Substance: DIPHENHYDRAMINE HYDROCHLORIDE
  4. CALCIUM [Concomitant]
     Active Substance: CALCIUM
  5. MATULANE [Suspect]
     Active Substance: PROCARBAZINE HYDROCHLORIDE
     Indication: BRAIN NEOPLASM MALIGNANT
     Dosage: 50 MILLIGRAM, BID, DAYS 8?12 OF 42 DAY CYCLE
     Route: 048
     Dates: start: 20190710
  6. ALENDRONATE [Concomitant]
     Active Substance: ALENDRONATE SODIUM
  7. LEVETIRACETAM. [Concomitant]
     Active Substance: LEVETIRACETAM
  8. OMEGA 3 COMPLETE [Concomitant]
  9. VITAMIN B12 [Concomitant]
     Active Substance: CYANOCOBALAMIN
  10. IRON [Concomitant]
     Active Substance: IRON
  11. VITAMIN D [VITAMIN D NOS] [Concomitant]
     Active Substance: VITAMIN D NOS

REACTIONS (3)
  - Platelet count decreased [Unknown]
  - Blood count abnormal [Unknown]
  - Memory impairment [Unknown]

NARRATIVE: CASE EVENT DATE: 201909
